FAERS Safety Report 6580987-1 (Version None)
Quarter: 2010Q1

REPORT INFORMATION
  Report Type: 
  Country: None (occurrence: None)
  Receive Date: 20100215
  Receipt Date: 20100204
  Transmission Date: 20100710
  Serious: Yes (Disabling)
  Sender: FDA-Public Use
  Company Number: FR-BRISTOL-MYERS SQUIBB COMPANY-14972863

PATIENT
  Age: 75 Year
  Sex: Male

DRUGS (4)
  1. ERBITUX [Suspect]
     Indication: COLORECTAL CANCER METASTATIC
     Dosage: 01FEB-01FEB10 (5TH COURSE)
     Route: 042
     Dates: start: 20100125, end: 20100125
  2. FOLINIC ACID [Concomitant]
     Indication: COLORECTAL CANCER METASTATIC
     Dosage: 01FEB2010(5TH COURSE)
     Route: 042
     Dates: start: 20100125
  3. FLUOROURACIL [Concomitant]
     Indication: COLORECTAL CANCER METASTATIC
     Dosage: 01FEB2010(5TH COURSE)
     Route: 042
     Dates: start: 20100125
  4. IRINOTECAN HCL [Concomitant]
     Indication: COLORECTAL CANCER METASTATIC
     Dosage: 01FEB2010(5TH COURSE)
     Route: 042
     Dates: start: 20100125

REACTIONS (3)
  - ERYTHEMA [None]
  - MUSCLE SPASMS [None]
  - VARICOSE VEIN [None]
